FAERS Safety Report 6319348-9 (Version None)
Quarter: 2009Q3

REPORT INFORMATION
  Report Type: 
  Country: None (occurrence: None)
  Receive Date: 20090822
  Receipt Date: 20080902
  Transmission Date: 20100115
  Serious: No
  Sender: FDA-Public Use
  Company Number: US-ABBOTT-08P-163-0473569-00

PATIENT
  Sex: Female
  Weight: 83.99 kg

DRUGS (3)
  1. NIASPAN [Suspect]
     Indication: BLOOD CHOLESTEROL INCREASED
     Route: 048
     Dates: start: 20080807, end: 20080831
  2. NIASPAN [Suspect]
     Indication: LOW DENSITY LIPOPROTEIN INCREASED
  3. LEVOTHYROXINE [Concomitant]
     Indication: HYPOTHYROIDISM

REACTIONS (9)
  - ASTHENIA [None]
  - CONSTIPATION [None]
  - FALL [None]
  - FLUSHING [None]
  - HEAD INJURY [None]
  - HEADACHE [None]
  - MENSTRUATION IRREGULAR [None]
  - SWELLING [None]
  - SYNCOPE [None]
